FAERS Safety Report 11390607 (Version 1)
Quarter: 2015Q3

REPORT INFORMATION
  Report Type: Spontaneous
  Country: US (occurrence: US)
  Receive Date: 20150818
  Receipt Date: 20150818
  Transmission Date: 20151125
  Serious: No
  Sender: FDA-Public Use
  Company Number: US-ROCHE-1395681

PATIENT
  Sex: Female

DRUGS (3)
  1. PEGASYS [Suspect]
     Active Substance: PEGINTERFERON ALFA-2A
     Indication: CHRONIC HEPATITIS C
     Route: 058
     Dates: start: 20140430
  2. RIBASPHERE RIBAPAK [Suspect]
     Active Substance: RIBAVIRIN
     Indication: CHRONIC HEPATITIS C
     Dosage: DIVIDED DOSES 600/400
     Route: 048
     Dates: start: 20140430
  3. SOVALDI [Suspect]
     Active Substance: SOFOSBUVIR
     Indication: CHRONIC HEPATITIS C
     Route: 065
     Dates: start: 20140430

REACTIONS (11)
  - Nasopharyngitis [Unknown]
  - Chest pain [Unknown]
  - Pneumonia [Unknown]
  - Cough [Unknown]
  - Respiratory tract congestion [Unknown]
  - Pancreatitis [Unknown]
  - Insomnia [Unknown]
  - Urinary tract infection [Unknown]
  - Dysgeusia [Not Recovered/Not Resolved]
  - Depression [Not Recovered/Not Resolved]
  - Tearfulness [Unknown]
